FAERS Safety Report 9036725 (Version 1)
Quarter: 2013Q1

REPORT INFORMATION
  Report Type: Spontaneous
  Country: US (occurrence: None)
  Receive Date: 20130118
  Receipt Date: 20130118
  Transmission Date: 20140127
  Serious: Yes (Other)
  Sender: FDA-Public Use
  Company Number: None

PATIENT
  Age: 45 Year
  Sex: Female

DRUGS (5)
  1. AMOXICILLIN [Suspect]
     Dates: start: 201112, end: 201112
  2. NEXIUM [Concomitant]
  3. LORAZEPAM [Concomitant]
  4. PREDNISONE [Concomitant]
  5. URSODIOL [Concomitant]

REACTIONS (7)
  - Drug-induced liver injury [None]
  - Toothache [None]
  - Hepatitis [None]
  - Confusional state [None]
  - Somnolence [None]
  - Antinuclear antibody positive [None]
  - Cholestasis [None]
